FAERS Safety Report 5562521-8 (Version None)
Quarter: 2007Q4

REPORT INFORMATION
  Report Type: 
  Country: None (occurrence: None)
  Receive Date: 20071217
  Receipt Date: 20071205
  Transmission Date: 20080405
  Serious: Yes (Hospitalization, Other)
  Sender: FDA-Public Use
  Company Number: US-JNJFOC-20071202489

PATIENT
  Sex: Female
  Weight: 61.69 kg

DRUGS (11)
  1. FENTANYL TRANSDERMAL SYSTEM [Suspect]
     Route: 062
  2. FENTANYL TRANSDERMAL SYSTEM [Suspect]
     Route: 062
  3. FENTANYL TRANSDERMAL SYSTEM [Suspect]
     Route: 062
  4. FENTANYL TRANSDERMAL SYSTEM [Suspect]
     Indication: PAIN
     Route: 062
  5. LEVOTHROID [Concomitant]
     Route: 048
  6. ALPRAZOLAM [Concomitant]
     Indication: ANXIETY
     Route: 048
  7. AMLODIPINE [Concomitant]
     Indication: BLOOD PRESSURE
     Route: 048
  8. LISINOPRIL [Concomitant]
     Indication: BLOOD PRESSURE
     Route: 048
  9. VICODIN [Concomitant]
     Indication: PAIN
     Route: 048
  10. AMITRIPTLINE HCL [Concomitant]
     Indication: SLEEP DISORDER
     Route: 048
  11. FAMOTIDINE [Concomitant]
     Route: 048

REACTIONS (9)
  - CATARACT [None]
  - FALL [None]
  - HALLUCINATION [None]
  - HYPERSOMNIA [None]
  - LOSS OF CONSCIOUSNESS [None]
  - MEMORY IMPAIRMENT [None]
  - RIB FRACTURE [None]
  - WITHDRAWAL SYNDROME [None]
  - WRONG TECHNIQUE IN DRUG USAGE PROCESS [None]
